FAERS Safety Report 23945362 (Version 1)
Quarter: 2024Q2

REPORT INFORMATION
  Report Type: Spontaneous
  Country: AU (occurrence: AU)
  Receive Date: 20240606
  Receipt Date: 20240606
  Transmission Date: 20240716
  Serious: Yes (Hospitalization)
  Sender: FDA-Public Use
  Company Number: None

PATIENT
  Age: 79 Year
  Sex: Male

DRUGS (68)
  1. BORTEZOMIB [Suspect]
     Active Substance: BORTEZOMIB
     Dosage: 1 ML
     Route: 058
     Dates: start: 20230320, end: 20230824
  2. BORTEZOMIB [Suspect]
     Active Substance: BORTEZOMIB
     Indication: Plasma cell myeloma
     Dosage: 1.3 MG/M2
     Route: 058
     Dates: start: 20230220, end: 20230227
  3. CILTACABTAGENE AUTOLEUCEL [Suspect]
     Active Substance: CILTACABTAGENE AUTOLEUCEL
     Indication: Plasma cell myeloma
     Dosage: 70 ML
     Route: 042
     Dates: start: 20230919, end: 20230919
  4. CYCLOPHOSPHAMIDE [Suspect]
     Active Substance: CYCLOPHOSPHAMIDE
     Indication: Plasma cell myeloma
     Dosage: 500 ML
     Route: 042
     Dates: start: 20230914, end: 20230916
  5. DEXAMETHASONE [Suspect]
     Active Substance: DEXAMETHASONE
     Dosage: 10 MG
     Route: 048
     Dates: start: 20230321, end: 20230828
  6. DEXAMETHASONE [Suspect]
     Active Substance: DEXAMETHASONE
     Indication: Plasma cell myeloma
     Dosage: 20 MG
     Route: 048
     Dates: start: 20230220, end: 20230228
  7. FLUDARABINE PHOSPHATE [Suspect]
     Active Substance: FLUDARABINE PHOSPHATE
     Indication: Plasma cell myeloma
     Dosage: 50 ML
     Route: 042
     Dates: start: 20230914, end: 20230916
  8. LENALIDOMIDE [Suspect]
     Active Substance: LENALIDOMIDE
     Indication: Plasma cell myeloma
     Dosage: 25 MG
     Route: 048
     Dates: start: 20230220, end: 20230228
  9. LENALIDOMIDE [Suspect]
     Active Substance: LENALIDOMIDE
     Dosage: 25 MG
     Route: 048
     Dates: start: 20230320, end: 20230827
  10. ASPIRIN [Concomitant]
     Active Substance: ASPIRIN
     Indication: Thrombosis prophylaxis
     Dosage: 100 MG
     Route: 048
     Dates: start: 20230613
  11. ACYCLOVIR [Concomitant]
     Active Substance: ACYCLOVIR
     Indication: Antiviral prophylaxis
     Dosage: 475 MG, INTERVAL: 1 DAY
     Route: 042
     Dates: start: 20230929, end: 20231001
  12. Agarol [Concomitant]
     Indication: Constipation
     Dosage: MILKSHAKE, 1 DOSE UNSPECIFIED
     Route: 048
     Dates: start: 20231017, end: 20231017
  13. AMPHOTERICIN B [Concomitant]
     Active Substance: AMPHOTERICIN B
     Indication: Prophylaxis
     Dosage: 10 MG
     Route: 048
     Dates: start: 20231002
  14. CEFEPIME HYDROCHLORIDE [Concomitant]
     Active Substance: CEFEPIME HYDROCHLORIDE
     Indication: Pyrexia
     Dosage: 2 G
     Route: 042
     Dates: start: 20230926, end: 20230930
  15. ENOXAPARIN SODIUM [Concomitant]
     Active Substance: ENOXAPARIN SODIUM
     Indication: Thrombosis prophylaxis
     Dosage: 40 MG, INTERVAL: 1 DAY
     Route: 058
     Dates: start: 20230920
  16. COLOXYL WITH SENNA [Concomitant]
     Indication: Constipation prophylaxis
     Dosage: 5 MG
     Route: 048
     Dates: start: 20231016
  17. COLOXYL WITH SENNA [Concomitant]
     Dosage: 2 DOSE UNSPECIFIED
     Route: 048
     Dates: start: 20231016
  18. COLOXYL WITH SENNA [Concomitant]
     Dosage: 2 DOSE UNSPECIFIED, INTERVAL: 1 AS NECESSARY
     Route: 048
     Dates: start: 20230410
  19. COLOXYL WITH SENNA [Concomitant]
     Indication: Constipation
     Dosage: 2 DOSE UNSPECIFIED, INTERVAL: 1 DAY
     Route: 048
     Dates: start: 20231016
  20. CYANOCOBALAMIN [Concomitant]
     Active Substance: CYANOCOBALAMIN
     Indication: Vitamin B12 deficiency
     Dosage: 1000 UG, INTERVAL: 1 DAY
     Route: 048
     Dates: start: 20230613
  21. DEXAMETHASONE [Concomitant]
     Active Substance: DEXAMETHASONE
     Dosage: 1 MG
     Route: 048
     Dates: start: 20231015, end: 20231015
  22. DEXAMETHASONE [Concomitant]
     Active Substance: DEXAMETHASONE
     Indication: Immune effector cell-associated neurotoxicity syndrome
     Dosage: 10 MG
     Route: 042
     Dates: start: 20230929, end: 20230929
  23. DEXAMETHASONE [Concomitant]
     Active Substance: DEXAMETHASONE
     Dosage: 10 MG, INTERVAL: 1 DAY
     Route: 048
     Dates: start: 20231004, end: 20231010
  24. DEXAMETHASONE [Concomitant]
     Active Substance: DEXAMETHASONE
     Dosage: 2 MG, INTERVAL: 1 DAY
     Route: 048
     Dates: start: 20231014, end: 20231014
  25. DEXAMETHASONE [Concomitant]
     Active Substance: DEXAMETHASONE
     Dosage: 4 MG
     Route: 048
     Dates: start: 20231013, end: 20231013
  26. DEXAMETHASONE [Concomitant]
     Active Substance: DEXAMETHASONE
     Dosage: 6 MG, INTERVAL: 1 DAY
     Route: 048
     Dates: start: 20231012, end: 20231012
  27. DEXAMETHASONE [Concomitant]
     Active Substance: DEXAMETHASONE
     Dosage: 8 MG, INTERVAL: 1 DAY
     Route: 048
     Dates: start: 20231011, end: 20231011
  28. DIAZEPAM [Concomitant]
     Active Substance: DIAZEPAM
     Indication: Sleep disorder therapy
     Dosage: 2 MG, INTERVAL: 1 AS NECESSARY
     Route: 048
     Dates: start: 20230220
  29. ENOXAPARIN SODIUM [Concomitant]
     Active Substance: ENOXAPARIN SODIUM
     Indication: Thrombosis prophylaxis
     Dosage: 40 MG, INTERVAL: 1 DAY
     Route: 058
     Dates: start: 20230217
  30. FILGRASTIM [Concomitant]
     Active Substance: FILGRASTIM
     Indication: White blood cell count decreased
     Dosage: 300 MG
     Route: 058
     Dates: start: 20231005, end: 20231005
  31. FLUCONAZOLE [Concomitant]
     Active Substance: FLUCONAZOLE
     Indication: Antifungal prophylaxis
     Dosage: 200 MG, INTERVAL: 1 DAY
     Route: 048
     Dates: start: 20231005
  32. GADOBUTROL [Concomitant]
     Active Substance: GADOBUTROL
     Indication: Magnetic resonance imaging head
     Dosage: 7.5 ML,INTERVAL: 1 TOTAL
     Route: 042
     Dates: start: 20231004, end: 20231004
  33. HEPARIN SODIUM [Concomitant]
     Active Substance: HEPARIN SODIUM
     Indication: Thrombosis prophylaxis
     Dosage: UNK, INTERVAL: 1 TOTAL
     Route: 058
     Dates: start: 20231001, end: 20231001
  34. LEVETIRACETAM [Concomitant]
     Active Substance: LEVETIRACETAM
     Indication: Seizure prophylaxis
     Dosage: 1000 MG, INTERVAL: 1 DAY
     Route: 048
     Dates: start: 20230929
  35. LEVETIRACETAM [Concomitant]
     Active Substance: LEVETIRACETAM
     Dosage: 1500 MG, INTERVAL:1 TOTAL
     Route: 042
     Dates: start: 20230929, end: 20230929
  36. MAGNESIUM ASPARTATE [Concomitant]
     Active Substance: MAGNESIUM ASPARTATE
     Indication: Nutritional supplementation
     Dosage: 1000 MG, INTERVAL: 1 DAY
     Route: 048
     Dates: start: 20231004
  37. MAGNESIUM ASPARTATE [Concomitant]
     Active Substance: MAGNESIUM ASPARTATE
     Dosage: 1000 MG, INTERVAL: 1 DAY
     Route: 048
     Dates: start: 20230920, end: 20230923
  38. MAGNESIUM ASPARTATE [Concomitant]
     Active Substance: MAGNESIUM ASPARTATE
     Dosage: 1000 MG, INTERVAL: 1 DAY
     Route: 048
     Dates: start: 20230927, end: 20230929
  39. MAGNESIUM SULFATE HEPTAHYDRATE [Concomitant]
     Active Substance: MAGNESIUM SULFATE HEPTAHYDRATE
     Indication: Supplementation therapy
     Dosage: 100 ML
     Route: 042
     Dates: start: 20230923, end: 20230928
  40. MAGNESIUM SULFATE HEPTAHYDRATE [Concomitant]
     Active Substance: MAGNESIUM SULFATE HEPTAHYDRATE
     Dosage: 100 ML, INTERVAL: 1 TOTAL
     Route: 042
     Dates: start: 20231006, end: 20231006
  41. METHYLPREDNISOLONE [Concomitant]
     Active Substance: METHYLPREDNISOLONE
     Indication: Prophylaxis
     Dosage: 150 MG, INTERVAL: 1 TOTAL
     Route: 042
     Dates: start: 20230929, end: 20230929
  42. METHYLPREDNISOLONE [Concomitant]
     Active Substance: METHYLPREDNISOLONE
     Dosage: 250 MG, INTERVAL: 1 TOTAL
     Route: 042
     Dates: start: 20231003, end: 20231003
  43. METHYLPREDNISOLONE [Concomitant]
     Active Substance: METHYLPREDNISOLONE
     Indication: Immune effector cell-associated neurotoxicity syndrome
     Dosage: 500 MG, INTERVAL: 1 TOTAL
     Route: 042
     Dates: start: 20231002, end: 20231002
  44. METOCLOPRAMIDE [Concomitant]
     Active Substance: METOCLOPRAMIDE
     Indication: Prophylaxis of nausea and vomiting
     Dosage: 10 ML,INTERVAL: 1 AS NECESSARY
     Route: 048
     Dates: start: 20230310
  45. Microlax [Concomitant]
     Indication: Constipation
     Dosage: DOSE FORM: ENEMA, 1 DOSE UNSPECIFIED, INTERVAL: 1 AS NECESSARY
     Route: 054
     Dates: start: 20231017
  46. MOVICOL [Concomitant]
     Active Substance: POLYETHYLENE GLYCOL 3350\POTASSIUM CHLORIDE\SODIUM BICARBONATE\SODIUM CHLORIDE
     Indication: Constipation
     Dosage: 1 DOSE UNSPECIFIED
     Route: 048
     Dates: start: 20231016
  47. MOVICOL [Concomitant]
     Active Substance: POLYETHYLENE GLYCOL 3350\POTASSIUM CHLORIDE\SODIUM BICARBONATE\SODIUM CHLORIDE
     Indication: Constipation prophylaxis
     Dosage: 1 DOSE UNSPECIFIED, INTERVAL: 1 AS NECESSARY
     Route: 048
     Dates: start: 20230302
  48. NYSTATIN [Concomitant]
     Active Substance: NYSTATIN
     Indication: Prophylaxis
     Dosage: 1 ML
     Route: 061
     Dates: start: 20230913, end: 20231002
  49. OXYCODONE [Concomitant]
     Active Substance: OXYCODONE\OXYCODONE HYDROCHLORIDE
     Indication: Pain prophylaxis
     Dosage: 2.5 MG, INTERVAL: 1 AS NECESSARY
     Route: 048
     Dates: start: 20230929, end: 20231006
  50. OXYCODONE [Concomitant]
     Active Substance: OXYCODONE\OXYCODONE HYDROCHLORIDE
     Indication: Back pain
     Dosage: 5 MG, INTERVAL: 1 AS NECESSARY
     Route: 048
     Dates: start: 20230310
  51. PANTOPRAZOLE SODIUM [Concomitant]
     Active Substance: PANTOPRAZOLE SODIUM
     Indication: Prophylaxis
     Dosage: 40 MG, INTERVAL: 1 DAY
     Route: 048
     Dates: start: 20230320
  52. ACETAMINOPHEN [Concomitant]
     Active Substance: ACETAMINOPHEN
     Indication: Pain prophylaxis
     Dosage: 1000 MG
     Route: 048
     Dates: start: 20231006
  53. ACETAMINOPHEN [Concomitant]
     Active Substance: ACETAMINOPHEN
     Indication: Pyrexia
     Dosage: 1000 MG
     Route: 048
     Dates: start: 20230926, end: 20230929
  54. ACETAMINOPHEN [Concomitant]
     Active Substance: ACETAMINOPHEN
     Indication: Antipyresis
     Dosage: 500 MG
     Route: 048
     Dates: start: 20230919, end: 20230926
  55. PENTAMIDINE ISETHIONATE [Concomitant]
     Active Substance: PENTAMIDINE ISETHIONATE
     Indication: Antifungal prophylaxis
     Dosage: 300 MG, INTERVAL: 4 WEEK
     Route: 065
     Dates: start: 20230921
  56. ROSUVASTATIN CALCIUM [Concomitant]
     Active Substance: ROSUVASTATIN CALCIUM
     Indication: Hypercholesterolaemia
     Dosage: 10 MG, INTERVAL: 1 DAY
     Route: 048
     Dates: start: 20230311
  57. SODIUM BICARBONATE [Concomitant]
     Active Substance: SODIUM BICARBONATE
     Indication: Mucositis management
     Dosage: 10 ML
     Route: 061
     Dates: start: 20230306
  58. SODIUM CHLORIDE [Concomitant]
     Active Substance: SODIUM CHLORIDE
     Indication: Hypotension
     Dosage: 1000 ML
     Route: 042
     Dates: start: 20230926, end: 20230927
  59. SODIUM CHLORIDE [Concomitant]
     Active Substance: SODIUM CHLORIDE
     Indication: Pyrexia
     Dosage: UNK
     Route: 065
  60. TAMSULOSIN HYDROCHLORIDE [Concomitant]
     Active Substance: TAMSULOSIN HYDROCHLORIDE
     Dosage: 400 MG, INTERVAL: 1 DAY
     Route: 048
     Dates: start: 20230311, end: 20230926
  61. TAMSULOSIN HYDROCHLORIDE [Concomitant]
     Active Substance: TAMSULOSIN HYDROCHLORIDE
     Indication: Benign prostatic hyperplasia
     Dosage: 400 MG, INTERVAL: 2 DAY
     Route: 048
     Dates: start: 20231002
  62. NALOXONE HYDROCHLORIDE\OXYCODONE HYDROCHLORIDE [Concomitant]
     Active Substance: NALOXONE HYDROCHLORIDE\OXYCODONE HYDROCHLORIDE
     Indication: Pain prophylaxis
     Dosage: 1 DOSE UNSPECIFIED, INTERVAL: 1 DAY
     Route: 048
     Dates: start: 20230310
  63. TOCILIZUMAB [Concomitant]
     Active Substance: TOCILIZUMAB
     Indication: Hypotension
     Dosage: 600 MG, INTERVAL: 1 TOTAL
     Route: 042
     Dates: start: 20230926, end: 20230926
  64. TOCILIZUMAB [Concomitant]
     Active Substance: TOCILIZUMAB
     Indication: Hypoxia
     Dosage: 600 MG, INTERVAL: 1 TOTAL
     Route: 042
     Dates: start: 20230929, end: 20230929
  65. TOCILIZUMAB [Concomitant]
     Active Substance: TOCILIZUMAB
     Indication: Immune effector cell-associated neurotoxicity syndrome
     Dosage: 600 MG, INTERVAL: 1 TOTAL
     Route: 042
     Dates: start: 20230930, end: 20230930
  66. TOCILIZUMAB [Concomitant]
     Active Substance: TOCILIZUMAB
     Indication: Pyrexia
     Dosage: 600 MG, INTERVAL: 1 TOTAL
     Route: 042
     Dates: start: 20230929, end: 20230929
  67. VALACYCLOVIR HYDROCHLORIDE [Concomitant]
     Active Substance: VALACYCLOVIR HYDROCHLORIDE
     Indication: Antiviral prophylaxis
     Dosage: 500 MG, INTERVAL: 1 DAY
     Route: 048
     Dates: start: 20230913
  68. ZOLEDRONIC ACID [Concomitant]
     Active Substance: ZOLEDRONIC ACID
     Indication: Prophylaxis
     Dosage: 4 MG, INTERVAL: 4 WEEK
     Route: 042
     Dates: start: 20230323

REACTIONS (1)
  - Orthostatic hypotension [Recovered/Resolved]

NARRATIVE: CASE EVENT DATE: 20231006
